FAERS Safety Report 7419033-6 (Version None)
Quarter: 2011Q2

REPORT INFORMATION
  Report Type: 
  Country: None (occurrence: None)
  Receive Date: 20110415
  Receipt Date: 20110414
  Transmission Date: 20111010
  Serious: Yes (Hospitalization, Other)
  Sender: FDA-Public Use
  Company Number: US-JNJFOC-20100800348

PATIENT
  Age: 82 Year
  Sex: Male

DRUGS (3)
  1. CORTICOSTEROIDS [Suspect]
     Indication: ILL-DEFINED DISORDER
     Route: 065
  2. ITRACONAZOLE [Suspect]
     Indication: ILL-DEFINED DISORDER
     Route: 065
  3. PROTON PUMP INHIBITOR [Suspect]
     Indication: ILL-DEFINED DISORDER
     Route: 065

REACTIONS (5)
  - DRUG INEFFECTIVE [None]
  - INHIBITORY DRUG INTERACTION [None]
  - PRESYNCOPE [None]
  - VASCULAR PSEUDOANEURYSM [None]
  - HAEMOPTYSIS [None]
